FAERS Safety Report 5276031-9 (Version None)
Quarter: 2007Q1

REPORT INFORMATION
  Report Type: 
  Country: None (occurrence: None)
  Receive Date: 20061213
  Receipt Date: 20060208
  Transmission Date: 20070707
  Serious: Yes (Disabling)
  Sender: FDA-Public Use
  Company Number: 2005UW13872

PATIENT
  Age: 46 Year
  Sex: Female

DRUGS (17)
  1. SEROQUEL [Suspect]
     Dates: start: 20040714, end: 20040801
  2. ZYPREXA [Suspect]
     Dates: start: 20010201, end: 20040801
  3. PROZAC [Concomitant]
  4. BUSPAR [Concomitant]
  5. TOPAMAX [Concomitant]
  6. TRAZODONE HCL [Concomitant]
  7. METFORMIN HCL [Concomitant]
  8. VIOXX [Concomitant]
  9. LOVASTATIN [Concomitant]
  10. HISTINE [Concomitant]
  11. ACTOS [Concomitant]
  12. HYDROCHLOROTHIAZIDE [Concomitant]
  13. POTASSIUM ACETATE [Concomitant]
  14. RANITIDINE [Concomitant]
  15. NAPROXEN [Concomitant]
  16. FUROSEMIDE [Concomitant]
  17. CLOTRIMAZOLE 1% VAGINAL CREAM [Concomitant]

REACTIONS (1)
  - DIABETES MELLITUS NON-INSULIN-DEPENDENT [None]
